FAERS Safety Report 19608156 (Version 1)
Quarter: 2021Q3

REPORT INFORMATION
  Report Type: Spontaneous
  Country: US (occurrence: US)
  Receive Date: 20210724
  Receipt Date: 20210724
  Transmission Date: 20211014
  Serious: No
  Sender: FDA-Public Use
  Company Number: None

PATIENT
  Age: 66 Year
  Sex: Male

DRUGS (1)
  1. IMDEVIMAB/CASIRIVIMAB [Suspect]
     Active Substance: CASIRIVIMAB\IMDEVIMAB
     Indication: SARS-COV-2 TEST POSITIVE
     Route: 042

REACTIONS (8)
  - Infusion related reaction [None]
  - Confusional state [None]
  - Hyperhidrosis [None]
  - Oxygen saturation decreased [None]
  - Dizziness [None]
  - Hypotension [None]
  - Seizure like phenomena [None]
  - Urinary incontinence [None]

NARRATIVE: CASE EVENT DATE: 20210721
